FAERS Safety Report 25192446 (Version 1)
Quarter: 2025Q2

REPORT INFORMATION
  Report Type: Other
  Country: IL (occurrence: IL)
  Receive Date: 20250414
  Receipt Date: 20250414
  Transmission Date: 20250716
  Serious: Yes (Hospitalization, Other)
  Sender: USAntibiotics
  Company Number: IL-USAntibiotics-000426

PATIENT
  Age: 77 Year
  Sex: Male

DRUGS (3)
  1. AMOXICILLIN [Suspect]
     Active Substance: AMOXICILLIN
     Indication: Tooth disorder
  2. AMOXICILLIN [Suspect]
     Active Substance: AMOXICILLIN
     Indication: Noninfective gingivitis
     Dosage: 500 MILLI GRAMS TWO ORAL DOSES
     Route: 048
  3. AMOXICILLIN [Suspect]
     Active Substance: AMOXICILLIN
     Indication: Tooth disorder
     Dosage: 500 MILLI GRAMS TWO ORAL DOSES
     Route: 048

REACTIONS (2)
  - Encephalitis [Recovering/Resolving]
  - Meningitis aseptic [Recovered/Resolved]
